FAERS Safety Report 14205428 (Version 1)
Quarter: 2017Q4

REPORT INFORMATION
  Report Type: Spontaneous
  Country: US (occurrence: None)
  Receive Date: 20171118
  Receipt Date: 20171118
  Transmission Date: 20180321
  Serious: Yes (Life-Threatening, Hospitalization)
  Sender: FDA-Public Use
  Company Number: None

PATIENT
  Age: 69 Year
  Sex: Male
  Weight: 100.24 kg

DRUGS (1)
  1. AZATHIOPRINE. [Suspect]
     Active Substance: AZATHIOPRINE
     Indication: PAIN
     Route: 048
     Dates: start: 20170605, end: 20171012

REACTIONS (11)
  - Thrombophlebitis [None]
  - Vomiting [None]
  - Asthenia [None]
  - Thrombocytopenia [None]
  - Aplastic anaemia [None]
  - Cough [None]
  - Febrile neutropenia [None]
  - Tremor [None]
  - Acute kidney injury [None]
  - Dyspepsia [None]
  - Pancytopenia [None]

NARRATIVE: CASE EVENT DATE: 20171013
